FAERS Safety Report 5738292-9 (Version None)
Quarter: 2008Q2

REPORT INFORMATION
  Report Type: 
  Country: None (occurrence: None)
  Receive Date: 20080514
  Receipt Date: 20080507
  Transmission Date: 20081010
  Serious: Yes (Hospitalization, Other)
  Sender: FDA-Public Use
  Company Number: DE-ABBOTT-08P-062-0448649-00

PATIENT
  Age: 50 Year
  Sex: Female
  Weight: 58 kg

DRUGS (6)
  1. HUMIRA [Suspect]
     Indication: RHEUMATOID ARTHRITIS
     Route: 058
     Dates: start: 20070201, end: 20070901
  2. HUMIRA [Suspect]
     Dates: start: 20071101
  3. CORTICOIDS [Concomitant]
     Indication: RHEUMATOID ARTHRITIS
     Dates: start: 20070901
  4. CORTICOIDS [Concomitant]
     Dates: start: 20071201
  5. LEFLUNOMIDE [Concomitant]
     Indication: RHEUMATOID ARTHRITIS
     Route: 048
     Dates: start: 20070901
  6. LEFLUNOMIDE [Concomitant]
     Route: 048
     Dates: start: 20070501, end: 20070601

REACTIONS (3)
  - IMPAIRED HEALING [None]
  - LIMB INJURY [None]
  - TRAUMATIC HAEMATOMA [None]
